FAERS Safety Report 9969755 (Version 1)
Quarter: 2014Q1

REPORT INFORMATION
  Report Type: Spontaneous
  Country: US (occurrence: None)
  Receive Date: 20140304
  Receipt Date: 20140304
  Transmission Date: 20141002
  Serious: Yes (Disabling)
  Sender: FDA-Public Use
  Company Number: None

PATIENT
  Age: 38 Year
  Sex: Female

DRUGS (1)
  1. ABILIFY, 10 MG, OTSUKA [Suspect]
     Indication: DEPRESSION
     Dosage: TAKEN BY MOUTH

REACTIONS (3)
  - Paraesthesia [None]
  - Pain [None]
  - Muscle twitching [None]
